FAERS Safety Report 13649335 (Version 1)
Quarter: 2017Q2

REPORT INFORMATION
  Report Type: Spontaneous
  Country: CA (occurrence: CA)
  Receive Date: 20170613
  Receipt Date: 20170613
  Transmission Date: 20170830
  Serious: Yes (Other)
  Sender: FDA-Public Use
  Company Number: CA-ASTRAZENECA-2017SE59775

PATIENT
  Age: 75 Year
  Sex: Male

DRUGS (1)
  1. SYMBICORT [Suspect]
     Active Substance: BUDESONIDE\FORMOTEROL FUMARATE DIHYDRATE
     Indication: ASTHMA
     Dosage: 2.0 DOSAGE FORMS, TWO EVERY ONE DAY
     Route: 055

REACTIONS (5)
  - Product quality issue [Recovered/Resolved]
  - Condition aggravated [Recovered/Resolved]
  - Product odour abnormal [Recovered/Resolved]
  - Gait disturbance [Recovered/Resolved]
  - Quality of life decreased [Recovered/Resolved]
